FAERS Safety Report 8524522 (Version 7)
Quarter: 2014Q3

REPORT INFORMATION
  Report Type: Report from Study
  Country: CA (occurrence: CA)
  Receive Date: 20120420
  Receipt Date: 20140917
  Transmission Date: 20150326
  Serious: Yes (Hospitalization, Other)
  Sender: FDA-Public Use
  Company Number: CA-ROCHE-1059526

PATIENT
  Age: 65 Year
  Sex: Male
  Weight: 125 kg

DRUGS (20)
  1. ACTEMRA [Suspect]
     Active Substance: TOCILIZUMAB
     Route: 065
     Dates: start: 20131112
  2. FOLIC ACID. [Concomitant]
     Active Substance: FOLIC ACID
  3. BISOPROLOL [Concomitant]
     Active Substance: BISOPROLOL
  4. ARAVA [Concomitant]
     Active Substance: LEFLUNOMIDE
  5. DIAMICRON [Concomitant]
     Active Substance: GLICLAZIDE
  6. SPIRONOLACTONE. [Concomitant]
     Active Substance: SPIRONOLACTONE
  7. ELTROXIN [Concomitant]
     Active Substance: LEVOTHYROXINE
  8. VITAMIN B COMPLEX [Concomitant]
     Active Substance: CYANOCOBALAMIN\DEXPANTHENOL\NIACINAMIDE\PYRIDOXINE HYDROCHLORIDE\RIBOFLAVIN 5^-PHOSPHATE SODIUM\THIAMINE HYDROCHLORIDE\VITAMIN B COMPLEX
  9. FUROSEMIDE. [Concomitant]
     Active Substance: FUROSEMIDE
  10. HYDRALAZINE [Concomitant]
     Active Substance: HYDRALAZINE HYDROCHLORIDE
  11. HUMULIN N INSULIN [Concomitant]
  12. ACETYLSALICYLIC ACID [Concomitant]
     Active Substance: ASPIRIN
     Route: 065
  13. ACTEMRA [Suspect]
     Active Substance: TOCILIZUMAB
     Indication: RHEUMATOID ARTHRITIS
     Route: 042
     Dates: start: 20120327
  14. DIOVAN [Concomitant]
     Active Substance: VALSARTAN
  15. OMEGA 3-6-9 [Concomitant]
  16. PREDNISONE. [Concomitant]
     Active Substance: PREDNISONE
  17. EFFEXOR [Concomitant]
     Active Substance: VENLAFAXINE HYDROCHLORIDE
  18. VITAMIN C [Concomitant]
     Active Substance: ASCORBIC ACID
  19. HALIBUT OIL [Concomitant]
  20. ATORVASTATIN [Concomitant]
     Active Substance: ATORVASTATIN

REACTIONS (7)
  - Hyperglycaemia [Unknown]
  - Hip surgery [Not Recovered/Not Resolved]
  - Hypotension [Unknown]
  - Ulcer haemorrhage [Recovered/Resolved]
  - Myocardial infarction [Unknown]
  - Diabetic foot [Not Recovered/Not Resolved]
  - Weight decreased [Unknown]

NARRATIVE: CASE EVENT DATE: 2013
